FAERS Safety Report 4686316-2 (Version None)
Quarter: 2005Q2

REPORT INFORMATION
  Report Type: 
  Country: None (occurrence: None)
  Receive Date: 20050609
  Receipt Date: 20050606
  Transmission Date: 20051028
  Serious: Yes (Hospitalization)
  Sender: FDA-Public Use
  Company Number: PHRM2005FR01732

PATIENT
  Age: 60 Year
  Sex: Female

DRUGS (15)
  1. NEORAL [Suspect]
     Indication: RENAL TRANSPLANT
     Dosage: 100 MG, QD
     Route: 048
  2. DEROXAT [Suspect]
     Dosage: 1 DF, QD
     Route: 048
     Dates: end: 20050507
  3. ZYLORIC [Suspect]
     Dosage: 300 MG, QD
     Route: 048
     Dates: end: 20050428
  4. NEORECORMON [Suspect]
     Dosage: 4000 IU, ONCE/SINGLE
     Route: 042
     Dates: start: 20050426, end: 20050426
  5. MOPRAL [Suspect]
     Dosage: 40 MG, QD
     Route: 048
  6. LEVOTHYROX [Concomitant]
     Dosage: 125 UG, QD
     Route: 048
  7. NEURONTIN [Concomitant]
     Dosage: 600 MG DAILY
     Route: 048
  8. RIVOTRIL [Concomitant]
     Dosage: 30 DROPS PER DAY
     Route: 048
  9. ZOLPIDEM TARTRATE [Concomitant]
     Dosage: 1 DF, QD
     Route: 048
  10. CALCIPARINE [Concomitant]
     Route: 058
  11. CELLCEPT [Concomitant]
     Indication: RENAL TRANSPLANT
     Dosage: 250 MG, QD
     Route: 048
  12. PHOSPHONEUROS [Concomitant]
     Route: 048
     Dates: start: 20050428, end: 20050510
  13. AMLOR [Concomitant]
     Dosage: 5 MG, QD
     Route: 048
     Dates: start: 20050427
  14. KENZEN [Concomitant]
     Route: 048
  15. AREDIA [Suspect]
     Indication: HYPERCALCAEMIA
     Dosage: 60 MG, ONCE/SINGLE
     Route: 042
     Dates: start: 20050426, end: 20050426

REACTIONS (4)
  - HYPERCALCAEMIA [None]
  - PYELONEPHRITIS [None]
  - PYREXIA [None]
  - WHITE BLOOD CELLS URINE POSITIVE [None]
